FAERS Safety Report 14179794 (Version 2)
Quarter: 2017Q4

REPORT INFORMATION
  Report Type: Spontaneous
  Country: US (occurrence: US)
  Receive Date: 20171110
  Receipt Date: 20171115
  Transmission Date: 20180321
  Serious: Yes (Other)
  Sender: FDA-Public Use
  Company Number: US-LUNDBECK-DKLU2038723

PATIENT
  Age: 73 Year
  Sex: Male

DRUGS (4)
  1. NORTHERA [Suspect]
     Active Substance: DROXIDOPA
     Indication: PARKINSON^S DISEASE
     Dosage: SCHEDULE A AND TITRATING
     Route: 048
     Dates: start: 20171013
  2. LEVO/CARBIDOPA [Suspect]
     Active Substance: CARBIDOPA\LEVODOPA
     Indication: PRODUCT USED FOR UNKNOWN INDICATION
     Route: 065
  3. NORTHERA [Suspect]
     Active Substance: DROXIDOPA
     Indication: ORTHOSTATIC HYPOTENSION
     Dosage: SCHEDULE A AND TITRATING
     Route: 048
  4. NORTHERA [Suspect]
     Active Substance: DROXIDOPA
     Indication: SYNCOPE

REACTIONS (9)
  - Altered state of consciousness [Unknown]
  - Hypersomnia [Unknown]
  - Blood pressure decreased [Unknown]
  - Dizziness postural [Unknown]
  - Blood pressure increased [Unknown]
  - Fall [Unknown]
  - Muscle spasms [Unknown]
  - Feeling hot [Unknown]
  - Weight decreased [Unknown]

NARRATIVE: CASE EVENT DATE: 20171016
